FAERS Safety Report 16224845 (Version 1)
Quarter: 2019Q2

REPORT INFORMATION
  Report Type: Spontaneous
  Country: CA (occurrence: CA)
  Receive Date: 20190422
  Receipt Date: 20190422
  Transmission Date: 20190711
  Serious: Yes (Hospitalization)
  Sender: FDA-Public Use
  Company Number: CA-PFIZER INC-2019164541

PATIENT
  Age: 63 Year
  Sex: Female

DRUGS (1)
  1. SULFASALAZINE. [Suspect]
     Active Substance: SULFASALAZINE

REACTIONS (6)
  - White blood cell count decreased [Unknown]
  - Liver function test increased [Unknown]
  - Drug hypersensitivity [Unknown]
  - Weight decreased [Unknown]
  - Rash generalised [Unknown]
  - Pyrexia [Unknown]
